FAERS Safety Report 4890006-0 (Version None)
Quarter: 2006Q1

REPORT INFORMATION
  Report Type: 
  Country: None (occurrence: None)
  Receive Date: 20060123
  Receipt Date: 20060111
  Transmission Date: 20060701
  Serious: Yes (Other)
  Sender: FDA-Public Use
  Company Number: 2005155492

PATIENT
  Age: 23 Month
  Sex: Female
  Weight: 26 kg

DRUGS (1)
  1. BENADRYL [Suspect]
     Indication: POISONING DELIBERATE
     Dosage: UNKNOWN AMOUNT, 5 DAYS A WEEK, ORAL
     Route: 048
     Dates: start: 20050801, end: 20051005

REACTIONS (5)
  - DRUG SCREEN POSITIVE [None]
  - DYSURIA [None]
  - INTENTIONAL DRUG MISUSE [None]
  - POLYURIA [None]
  - THERMAL BURN [None]
